FAERS Safety Report 10486134 (Version 4)
Quarter: 2014Q4

REPORT INFORMATION
  Report Type: Spontaneous
  Country: JP (occurrence: JP)
  Receive Date: 20141001
  Receipt Date: 20141219
  Transmission Date: 20150528
  Serious: Yes (Life-Threatening)
  Sender: FDA-Public Use
  Company Number: JP-AMGEN-JPNSP2014074942

PATIENT
  Age: 61 Year
  Sex: Female
  Weight: 57 kg

DRUGS (26)
  1. AZILVA [Concomitant]
     Active Substance: AZILSARTAN KAMEDOXOMIL
     Indication: HYPERTENSION
     Dosage: 40 MG, QD
     Route: 048
     Dates: start: 20140807
  2. NIFEDIPINE. [Concomitant]
     Active Substance: NIFEDIPINE
     Indication: HYPERTENSION
     Dosage: 20 MG, BID
     Route: 048
     Dates: end: 20140706
  3. LOXOPROFEN NA [Concomitant]
     Active Substance: LOXOPROFEN SODIUM
     Dosage: 60 MG, AS NECESSARY
     Route: 048
  4. PAXIL [Concomitant]
     Active Substance: PAROXETINE HYDROCHLORIDE
     Indication: SCHIZOPHRENIA
     Dosage: 10 MG, BID
     Route: 048
  5. FUROSEMIDE. [Concomitant]
     Active Substance: FUROSEMIDE
     Indication: CHRONIC KIDNEY DISEASE
     Dosage: 20 MG, QD
     Route: 048
     Dates: start: 20140611
  6. THYRADIN S [Concomitant]
     Active Substance: LEVOTHYROXINE SODIUM
     Indication: DIABETES MELLITUS
     Dosage: 50 MUG, QD
     Route: 048
     Dates: start: 20140610
  7. SERENACE [Concomitant]
     Active Substance: HALOPERIDOL
     Indication: INSOMNIA
     Dosage: 0.75 MG, QD
     Route: 048
  8. ALDACTONE [Concomitant]
     Active Substance: SPIRONOLACTONE
     Indication: CARDIAC FAILURE
     Dosage: 25 MG, TID
     Route: 048
     Dates: start: 20140724, end: 20140903
  9. ARTIST [Concomitant]
     Active Substance: CARVEDILOL
     Indication: MYOCARDIAL INFARCTION
     Dosage: 2.5 MG, BID
     Route: 048
     Dates: start: 20140705
  10. LANSOPRAZOLE. [Concomitant]
     Active Substance: LANSOPRAZOLE
     Indication: CHRONIC GASTRITIS
     Dosage: 15 MG, BID
     Route: 048
     Dates: end: 20140928
  11. FRANDOL [Concomitant]
     Active Substance: ISOSORBIDE DINITRATE
     Indication: MYOCARDIAL INFARCTION
     Dosage: 40 MG, QD
     Route: 062
  12. DAITALIC [Concomitant]
     Indication: CARDIAC FAILURE CHRONIC
     Dosage: 30 MG, QD
     Route: 048
     Dates: start: 20140611
  13. REBAMIPIDE [Concomitant]
     Active Substance: REBAMIPIDE
     Indication: CHRONIC GASTRITIS
     Dosage: 100 MG, TID
     Route: 048
     Dates: start: 20140929
  14. LIVACT                             /00847901/ [Concomitant]
     Indication: CHRONIC GASTRITIS
     Dosage: 4.15 G, UNK
     Route: 048
  15. DAITALIC [Concomitant]
     Indication: HYPERTENSION
  16. PENTONA                            /01070902/ [Concomitant]
     Indication: SCHIZOPHRENIA
     Dosage: 40 MG, QD
     Route: 048
  17. DOXAZOSIN [Concomitant]
     Active Substance: DOXAZOSIN\DOXAZOSIN MESYLATE
     Dosage: 20 MG, QD
     Route: 048
     Dates: start: 20140730
  18. UREPEARL [Concomitant]
     Active Substance: UREA
     Dosage: UNK
     Route: 061
     Dates: start: 20140825
  19. ITOROL [Concomitant]
     Active Substance: ISOSORBIDE MONONITRATE
     Indication: MYOCARDIAL INFARCTION
     Dosage: 20 MG, BID
     Route: 048
  20. OLMETEC [Concomitant]
     Active Substance: OLMESARTAN MEDOXOMIL
     Indication: HYPERTENSION
     Dosage: 20 MG, QD
     Route: 048
     Dates: start: 20140613, end: 20140806
  21. BENZMARONE [Concomitant]
     Active Substance: BENZBROMARONE
     Indication: HYPERURICAEMIA
     Dosage: 50 MG, QD
     Route: 048
     Dates: start: 20140804
  22. RESTAMIN                           /00000401/ [Concomitant]
     Indication: PRURITUS
     Dosage: UNK
     Route: 061
  23. ARGAMATE [Concomitant]
     Active Substance: POLYSTYRENE
     Dosage: 25 G, BID
     Route: 048
     Dates: start: 20140901
  24. NESP [Suspect]
     Active Substance: DARBEPOETIN ALFA
     Indication: NEPHROGENIC ANAEMIA
     Dosage: 60 MUG, UNK
     Route: 058
     Dates: start: 20140804, end: 20140821
  25. FUROSEMIDE. [Concomitant]
     Active Substance: FUROSEMIDE
     Indication: HYPERTENSION
  26. SAMSCA [Concomitant]
     Active Substance: TOLVAPTAN
     Indication: CARDIAC FAILURE CHRONIC
     Dosage: 7.5 MG, QD
     Route: 048
     Dates: start: 20140611

REACTIONS (2)
  - Anaemia [Recovered/Resolved]
  - Anaemia [Not Recovered/Not Resolved]

NARRATIVE: CASE EVENT DATE: 20140901
